FAERS Safety Report 22626451 (Version 1)
Quarter: 2023Q2

REPORT INFORMATION
  Report Type: Spontaneous
  Country: CN (occurrence: CN)
  Receive Date: 20230621
  Receipt Date: 20230621
  Transmission Date: 20230721
  Serious: Yes (Hospitalization, Other)
  Sender: FDA-Public Use
  Company Number: CN-009507513-2306CHN009777

PATIENT
  Age: 58 Year
  Sex: Male
  Weight: 66 kg

DRUGS (3)
  1. KEYTRUDA [Suspect]
     Active Substance: PEMBROLIZUMAB
     Indication: Neoplasm malignant
     Dosage: 200MG, ONCE, ALSO REPORTED AS ONCE A DAY
     Route: 041
     Dates: start: 20220422, end: 20230422
  2. CARBOPLATIN [Suspect]
     Active Substance: CARBOPLATIN
     Indication: Neoplasm malignant
     Dosage: 380MG, ONCE, ALSO REPORTED AS ONCE A DAY
     Route: 041
     Dates: start: 20220422, end: 20220422
  3. ALIMTA [Suspect]
     Active Substance: PEMETREXED DISODIUM
     Indication: Neoplasm malignant
     Dosage: 890MG, ONCE, ALSO REPORTED AS ONCE A DAY
     Route: 041
     Dates: start: 20220422, end: 20220422

REACTIONS (3)
  - Myelosuppression [Recovering/Resolving]
  - Rash erythematous [Recovering/Resolving]
  - Rash pruritic [Recovering/Resolving]

NARRATIVE: CASE EVENT DATE: 20220424
